FAERS Safety Report 4836510-2 (Version None)
Quarter: 2005Q4

REPORT INFORMATION
  Report Type: 
  Country: None (occurrence: None)
  Receive Date: 20051123
  Receipt Date: 20051102
  Transmission Date: 20060501
  Serious: Yes (Other)
  Sender: FDA-Public Use
  Company Number: AT-GLAXOSMITHKLINE-B0399459A

PATIENT
  Age: 76 Year
  Sex: Male
  Weight: 64 kg

DRUGS (2)
  1. AUGMENTIN [Suspect]
     Indication: NASOPHARYNGITIS
     Dosage: 1TAB TWICE PER DAY
     Route: 048
     Dates: start: 20051025, end: 20051031
  2. ASPIRIN [Concomitant]

REACTIONS (1)
  - DIPLOPIA [None]
